FAERS Safety Report 4409849-2 (Version None)
Quarter: 2004Q3

REPORT INFORMATION
  Report Type: 
  Country: None (occurrence: None)
  Receive Date: 20040728
  Receipt Date: 20040130
  Transmission Date: 20050211
  Serious: No
  Sender: FDA-Public Use
  Company Number: US-GLAXOSMITHKLINE-A0495959A

PATIENT
  Age: 78 Year
  Sex: Female

DRUGS (2)
  1. DYAZIDE [Suspect]
     Route: 048
     Dates: start: 20030601
  2. VASOTEC [Concomitant]

REACTIONS (1)
  - MUSCLE CRAMP [None]
